FAERS Safety Report 6250318-5 (Version None)
Quarter: 2009Q2

REPORT INFORMATION
  Report Type: 
  Country: None (occurrence: None)
  Receive Date: 20090628
  Receipt Date: 20090628
  Transmission Date: 20091009
  Serious: Yes (Other)
  Sender: FDA-Public Use
  Company Number: None

PATIENT
  Age: 59 Year
  Sex: Male
  Weight: 102.0593 kg

DRUGS (1)
  1. DILT-XR DILTIAZEM HCI 240 MG APOTEX [Suspect]
     Indication: HYPERTENSION
     Dosage: 240 MG ONE/DAY PO
     Route: 048
     Dates: start: 20090530, end: 20090602

REACTIONS (5)
  - BLOOD PRESSURE INCREASED [None]
  - CHROMATURIA [None]
  - HEART RATE INCREASED [None]
  - INSOMNIA [None]
  - PRODUCT SUBSTITUTION ISSUE [None]
